FAERS Safety Report 10210354 (Version 1)
Quarter: 2014Q2

REPORT INFORMATION
  Report Type: Spontaneous
  Country: US (occurrence: US)
  Receive Date: 20140602
  Receipt Date: 20140602
  Transmission Date: 20141212
  Serious: No
  Sender: FDA-Public Use
  Company Number: US-PFIZER INC-2014146720

PATIENT
  Age: 73 Year
  Sex: Female
  Weight: 88.44 kg

DRUGS (3)
  1. LEVOXYL [Suspect]
     Indication: HYPOTHYROIDISM
     Dosage: UNK (25MCG IN THE MORNING AND 12.5MCG IN THE EVENING)
     Route: 048
     Dates: start: 2007, end: 201304
  2. LEVOXYL [Suspect]
     Dosage: UNK (25MCG IN THE MORNING AND 12.5MCG IN THE EVENING)
     Route: 048
     Dates: start: 201403, end: 2014
  3. CHLORTHALIDONE [Concomitant]
     Indication: HYPERTENSION
     Dosage: 6.25 MG, DAILY

REACTIONS (3)
  - Gastrooesophageal reflux disease [Recovered/Resolved]
  - Abdominal discomfort [Recovered/Resolved]
  - Muscle tightness [Recovered/Resolved]
